FAERS Safety Report 4509429-4 (Version None)
Quarter: 2004Q4

REPORT INFORMATION
  Report Type: 
  Country: None (occurrence: None)
  Receive Date: 20041025
  Receipt Date: 20040625
  Transmission Date: 20050328
  Serious: Yes (Other)
  Sender: FDA-Public Use
  Company Number: US-JNJFOC-20040608086

PATIENT
  Age: 76 Year
  Sex: Female

DRUGS (8)
  1. INFLIXIMAB (INFLIXIMAB, RECOMBINANT) LYOPHILIZED POWDER [Suspect]
     Indication: RHEUMATOID ARTHRITIS
     Dosage: INTRAVENOUS
     Route: 042
     Dates: start: 20030417, end: 20030808
  2. PREDNISONE [Concomitant]
  3. VICODIN [Concomitant]
  4. MUCINEX (ALL OTHER THERAPEUTIC PRODUCTS) [Concomitant]
  5. NASONEX [Concomitant]
  6. LEVOXYL [Concomitant]
  7. IRON SUPPLEMENTS (IRON) [Concomitant]
  8. FOLIC ACID [Concomitant]

REACTIONS (2)
  - COUGH [None]
  - DYSPNOEA [None]
